FAERS Safety Report 21085900 (Version 1)
Quarter: 2022Q3

REPORT INFORMATION
  Report Type: Spontaneous
  Country: FR (occurrence: FR)
  Receive Date: 20220715
  Receipt Date: 20220715
  Transmission Date: 20221026
  Serious: No
  Sender: FDA-Public Use
  Company Number: FR-ALKEM LABORATORIES LIMITED-FR-ALKEM-2022-05556

PATIENT
  Sex: Female

DRUGS (6)
  1. DRONABINOL [Suspect]
     Active Substance: DRONABINOL
     Indication: Neuralgia
     Dosage: 2.5 MILLIGRAM, BID
     Route: 065
     Dates: start: 20191212
  2. LIDOCAINE [Concomitant]
     Active Substance: LIDOCAINE
     Indication: Product used for unknown indication
     Dosage: UNK, 1 DAILY
     Route: 065
     Dates: start: 20140924
  3. TRAMADOL [Concomitant]
     Active Substance: TRAMADOL
     Indication: Product used for unknown indication
     Dosage: 50 MILLIGRAM 3 TO 6 TIMES DAILY
     Route: 065
     Dates: start: 201410
  4. ERGOTAMINE TARTRATE [Concomitant]
     Active Substance: ERGOTAMINE TARTRATE
     Indication: Migraine
     Dosage: UNK, 1 TO 6 MONTHLY
     Route: 065
     Dates: start: 2018
  5. CELEBREX [Concomitant]
     Active Substance: CELECOXIB
     Indication: Arthralgia
     Dosage: 200 MG DAILY
     Route: 065
     Dates: start: 201809
  6. LEVOTHYROXINE [Concomitant]
     Active Substance: LEVOTHYROXINE
     Indication: Product used for unknown indication
     Dosage: 100 MILLIGRAM DAILY
     Route: 065
     Dates: start: 2015

REACTIONS (3)
  - Vertigo [Unknown]
  - Product prescribing issue [Unknown]
  - Inappropriate schedule of product administration [Unknown]
